FAERS Safety Report 9029386 (Version 2)
Quarter: 2013Q1

REPORT INFORMATION
  Report Type: Spontaneous
  Country: BR (occurrence: BR)
  Receive Date: 20130125
  Receipt Date: 20130227
  Transmission Date: 20140127
  Serious: Yes (Other)
  Sender: FDA-Public Use
  Company Number: PHHY2013BR006767

PATIENT
  Sex: Male

DRUGS (1)
  1. FORASEQ [Suspect]
     Indication: ASTHMA
     Dosage: 4 DF, DAILY
     Dates: start: 2008

REACTIONS (1)
  - Drug dependence [Unknown]
